FAERS Safety Report 14073404 (Version 2)
Quarter: 2017Q4

REPORT INFORMATION
  Report Type: Spontaneous
  Country: BE (occurrence: BE)
  Receive Date: 20171011
  Receipt Date: 20171012
  Transmission Date: 20180321
  Serious: Yes (Other)
  Sender: FDA-Public Use
  Company Number: BE-REGENERON PHARMACEUTICALS, INC.-2017-23635

PATIENT

DRUGS (1)
  1. EYLEA [Suspect]
     Active Substance: AFLIBERCEPT
     Indication: PRODUCT USED FOR UNKNOWN INDICATION
     Dosage: (52 WEEKS OF TREATMENT)

REACTIONS (2)
  - Detachment of retinal pigment epithelium [Unknown]
  - Retinal oedema [Unknown]
